FAERS Safety Report 16782560 (Version 2)
Quarter: 2019Q3

REPORT INFORMATION
  Report Type: Spontaneous
  Country: CN (occurrence: CN)
  Receive Date: 20190906
  Receipt Date: 20190910
  Transmission Date: 20191005
  Serious: Yes (Death, Other)
  Sender: FDA-Public Use
  Company Number: CN-ASTRAZENECA-2019SF26702

PATIENT
  Age: 66 Year
  Sex: Female
  Weight: 62 kg

DRUGS (2)
  1. IRESSA [Suspect]
     Active Substance: GEFITINIB
     Indication: NON-SMALL CELL LUNG CANCER
     Dosage: 1 TABLET QD, ORAL FOR MORE THAN 2 YEARS
     Route: 048
  2. BEVACIZUMAB. [Concomitant]
     Active Substance: BEVACIZUMAB
     Route: 042

REACTIONS (3)
  - Malignant neoplasm progression [Fatal]
  - Drug resistance [Unknown]
  - Metastasis [Unknown]

NARRATIVE: CASE EVENT DATE: 201904
